FAERS Safety Report 8269465-1 (Version None)
Quarter: 2012Q2

REPORT INFORMATION
  Report Type: 
  Country: None (occurrence: None)
  Receive Date: 20120409
  Receipt Date: 20120405
  Transmission Date: 20120825
  Serious: Yes (Other)
  Sender: FDA-Public Use
  Company Number: GB-MERCK-1204GBR00030

PATIENT
  Age: 48 Year
  Sex: Female
  Weight: 54 kg

DRUGS (3)
  1. COZAAR [Suspect]
     Route: 048
     Dates: start: 20120126
  2. FELODIPINE [Concomitant]
     Route: 065
     Dates: start: 20120224, end: 20120323
  3. NORETHINDRONE [Concomitant]
     Route: 065
     Dates: start: 20120201

REACTIONS (1)
  - SPIDER NAEVUS [None]
